FAERS Safety Report 17625590 (Version 1)
Quarter: 2020Q2

REPORT INFORMATION
  Report Type: Spontaneous
  Country: NL (occurrence: NL)
  Receive Date: 20200404
  Receipt Date: 20200404
  Transmission Date: 20200713
  Serious: Yes (Other)
  Sender: FDA-Public Use
  Company Number: NL-ROCHE-2573666

PATIENT
  Age: 40 Year
  Sex: Female

DRUGS (1)
  1. OCRELIZUMAB. [Suspect]
     Active Substance: OCRELIZUMAB
     Indication: RELAPSING-REMITTING MULTIPLE SCLEROSIS
     Route: 065
     Dates: start: 201805, end: 201911

REACTIONS (3)
  - Immune thrombocytopenia [Unknown]
  - Pyrexia [Unknown]
  - Thrombosis [Unknown]

NARRATIVE: CASE EVENT DATE: 201907
